FAERS Safety Report 5385097-7 (Version None)
Quarter: 2007Q3

REPORT INFORMATION
  Report Type: 
  Country: None (occurrence: None)
  Receive Date: 20070705
  Receipt Date: 20070705
  Transmission Date: 20080115
  Serious: No
  Sender: FDA-Public Use
  Company Number: None

PATIENT
  Sex: Female

DRUGS (1)
  1. HYDROXYCHLOROQUINE TABS 200MG WATSON [Suspect]
     Indication: CONNECTIVE TISSUE DISORDER
     Dosage: TAKE 1 TABLET TWICE A DAY WITH FOOD
     Dates: start: 20070215

REACTIONS (4)
  - DYSGEUSIA [None]
  - DYSPHAGIA [None]
  - PHARMACEUTICAL PRODUCT COMPLAINT [None]
  - STOMACH DISCOMFORT [None]
